FAERS Safety Report 11553124 (Version 5)
Quarter: 2016Q2

REPORT INFORMATION
  Report Type: Spontaneous
  Country: US (occurrence: US)
  Receive Date: 20150925
  Receipt Date: 20160516
  Transmission Date: 20160815
  Serious: No
  Sender: FDA-Public Use
  Company Number: US-GLAXOSMITHKLINE-US2015GSK103853

PATIENT
  Age: 69 Year
  Sex: Female

DRUGS (3)
  1. MEPRON [Suspect]
     Active Substance: ATOVAQUONE
     Indication: PRODUCT USED FOR UNKNOWN INDICATION
     Dosage: UNK
  2. MEPRON [Suspect]
     Active Substance: ATOVAQUONE
     Dosage: UNK
  3. MALARONE [Suspect]
     Active Substance: ATOVAQUONE\PROGUANIL HYDROCHLORIDE
     Indication: MALARIA
     Dosage: UNK, U

REACTIONS (5)
  - Hyperhidrosis [Unknown]
  - Incorrect product storage [Unknown]
  - Drug effect decreased [Unknown]
  - Ligament sprain [Unknown]
  - Drug ineffective [Unknown]

NARRATIVE: CASE EVENT DATE: 201601
